FAERS Safety Report 9248134 (Version 2)
Quarter: 2013Q2

REPORT INFORMATION
  Report Type: Spontaneous
  Country: US (occurrence: US)
  Receive Date: 20130423
  Receipt Date: 20130513
  Transmission Date: 20140414
  Serious: No
  Sender: FDA-Public Use
  Company Number: US-PFIZER INC-2013122428

PATIENT
  Age: 46 Year
  Sex: Female
  Weight: 88.44 kg

DRUGS (12)
  1. SOMAVERT [Suspect]
     Indication: ACROMEGALY
     Dosage: 20 MG, UNK
  2. SOMAVERT [Suspect]
     Dosage: 10 MG, DAILY
     Route: 058
     Dates: start: 20120327
  3. SOMAVERT [Suspect]
     Dosage: UNK, ALTERNATE DAY
     Route: 058
  4. PULMICORT [Concomitant]
     Dosage: 200 UG, UNK
  5. LINZESS [Concomitant]
     Dosage: 145 UG, 1X/DAY
     Dates: start: 20130408
  6. MULTIVITAMINS [Concomitant]
     Dosage: UNK
  7. ADVIL [Concomitant]
     Dosage: 2-3 CAPSULES OF 200 MG, AS NEEDED
     Dates: start: 20111121
  8. CALCIUM MAGNESIUM ZINC [Concomitant]
     Dosage: 3000/1200/45 MG (3 TABLETS OF 1000/400/15 MG), DAILY
     Dates: start: 20100115
  9. LEVOTHYROXINE SODIUM [Concomitant]
     Dosage: 25 UG (1 TABLET), DAILY
     Dates: start: 20130425
  10. MELATONIN [Concomitant]
     Dosage: 3 MG (1 CAPSULE), AS NEEDED (AT BEDTIME)
     Dates: start: 20061215
  11. VITAMIN D [Concomitant]
     Dosage: 400 UNIT/ML LIQUID
     Dates: start: 20130408
  12. MULTIPLE VITAMINS [Concomitant]
     Dosage: 2 DF (2 TABLETS), 2X/DAY
     Dates: start: 20110718

REACTIONS (3)
  - Constipation [Unknown]
  - Liver function test abnormal [Unknown]
  - Alanine aminotransferase increased [Not Recovered/Not Resolved]
